FAERS Safety Report 13734284 (Version 2)
Quarter: 2017Q4

REPORT INFORMATION
  Report Type: Spontaneous
  Country: FR (occurrence: FR)
  Receive Date: 20170708
  Receipt Date: 20171208
  Transmission Date: 20180320
  Serious: Yes (Life-Threatening, Hospitalization)
  Sender: FDA-Public Use
  Company Number: FR-009507513-1707FRA000383

PATIENT
  Sex: Female
  Weight: 1.49 kg

DRUGS (11)
  1. PREDNISONE. [Suspect]
     Active Substance: PREDNISONE
     Route: 064
     Dates: start: 20161019
  2. DEXAMETHASONE. [Suspect]
     Active Substance: DEXAMETHASONE
     Dosage: 6 MG/M2, DROM DAY 8 TO DAY 28
     Route: 064
     Dates: start: 20161105
  3. DEXAMETHASONE. [Suspect]
     Active Substance: DEXAMETHASONE
     Route: 064
  4. ONCOVIN [Suspect]
     Active Substance: VINCRISTINE SULFATE
     Route: 064
  5. ONCOVIN [Suspect]
     Active Substance: VINCRISTINE SULFATE
     Indication: B PRECURSOR TYPE ACUTE LEUKAEMIA
     Dosage: AT DAY 8, DAY 15, DAY 22, DAY 29
     Route: 064
     Dates: start: 20161026
  6. DAUNORUBICIN [Suspect]
     Active Substance: DAUNORUBICIN
  7. PREDNISONE. [Suspect]
     Active Substance: PREDNISONE
     Dosage: UNK
     Route: 064
     Dates: start: 20161019
  8. CELESTENE 4MG/1ML [Suspect]
     Active Substance: BETAMETHASONE
     Indication: MATURE B-CELL TYPE ACUTE LEUKAEMIA
     Dosage: UNK
     Route: 064
     Dates: end: 20161109
  9. ASPARAGINASE [Suspect]
     Active Substance: ASPARAGINASE
     Indication: B PRECURSOR TYPE ACUTE LEUKAEMIA
     Dosage: 6000 IU/M2 ONE DAY OUT OF 2 UNTIL DAY 28
     Route: 064
  10. DEXAMETHASONE. [Suspect]
     Active Substance: DEXAMETHASONE
     Indication: PROPHYLAXIS
     Dosage: 6 MG/M2, DROM DAY 8 TO DAY 28
     Route: 064
     Dates: start: 20161104
  11. ASPARAGINASE [Suspect]
     Active Substance: ASPARAGINASE
     Route: 064

REACTIONS (3)
  - Anaemia [Recovering/Resolving]
  - Premature delivery [Recovered/Resolved]
  - Neonatal respiratory distress syndrome [Recovered/Resolved]

NARRATIVE: CASE EVENT DATE: 20161129
